FAERS Safety Report 17965120 (Version 1)
Quarter: 2020Q2

REPORT INFORMATION
  Report Type: Spontaneous
  Country: US (occurrence: US)
  Receive Date: 20200630
  Receipt Date: 20200630
  Transmission Date: 20200714
  Serious: No
  Sender: FDA-Public Use
  Company Number: US-SHIRE-US202020994

PATIENT
  Sex: Female

DRUGS (3)
  1. GAMMAGARD LIQUID [Concomitant]
     Active Substance: HUMAN IMMUNOGLOBULIN G
     Indication: IMMUNODEFICIENCY
  2. CUVITRU [Suspect]
     Active Substance: HUMAN IMMUNOGLOBULIN G
     Indication: IMMUNODEFICIENCY
     Dosage: 20 GRAM, 1X/WEEK
     Route: 058
     Dates: start: 20200611
  3. BENADRYL [Concomitant]
     Active Substance: DIPHENHYDRAMINE HYDROCHLORIDE
     Indication: HYPERSENSITIVITY

REACTIONS (7)
  - Diarrhoea [Unknown]
  - Needle issue [Unknown]
  - Lethargy [Unknown]
  - Somnolence [Unknown]
  - Musculoskeletal discomfort [Recovering/Resolving]
  - Sleep disorder [Unknown]
  - Product dose omission [Unknown]
